FAERS Safety Report 10010302 (Version 1)
Quarter: 2014Q1

REPORT INFORMATION
  Report Type: Spontaneous
  Country: GB (occurrence: GB)
  Receive Date: 20140314
  Receipt Date: 20140314
  Transmission Date: 20141002
  Serious: Yes (Death, Other)
  Sender: FDA-Public Use
  Company Number: GB-JNJFOC-20140305381

PATIENT
  Age: 79 Year
  Sex: Female

DRUGS (3)
  1. MICONAZOLE [Suspect]
     Route: 002
  2. MICONAZOLE [Suspect]
     Indication: ORAL CANDIDIASIS
     Route: 002
     Dates: start: 20131021, end: 20131030
  3. WARFARIN [Interacting]
     Indication: PRODUCT USED FOR UNKNOWN INDICATION
     Route: 065

REACTIONS (3)
  - Haemorrhage intracranial [Fatal]
  - International normalised ratio increased [Fatal]
  - Drug interaction [Unknown]
